FAERS Safety Report 17769230 (Version 1)
Quarter: 2020Q2

REPORT INFORMATION
  Report Type: Spontaneous
  Country: GB (occurrence: GB)
  Receive Date: 20200512
  Receipt Date: 20200512
  Transmission Date: 20200714
  Serious: Yes (Hospitalization)
  Sender: FDA-Public Use
  Company Number: GB-ROCHE-2596509

PATIENT
  Age: 12 Year
  Sex: Female

DRUGS (11)
  1. ETANERCEPT [Suspect]
     Active Substance: ETANERCEPT
     Indication: POLYARTHRITIS
     Route: 065
  2. ABATACEPT [Suspect]
     Active Substance: ABATACEPT
     Indication: JUVENILE IDIOPATHIC ARTHRITIS
  3. CEFTRIAXONE. [Concomitant]
     Active Substance: CEFTRIAXONE
     Route: 042
  4. PREDNISOLONE. [Concomitant]
     Active Substance: PREDNISOLONE
     Indication: JUVENILE IDIOPATHIC ARTHRITIS
  5. METHOTREXATE. [Concomitant]
     Active Substance: METHOTREXATE
     Indication: POLYARTHRITIS
  6. CLARITHROMYCIN. [Concomitant]
     Active Substance: CLARITHROMYCIN
  7. METHYLPREDNISOLONE. [Concomitant]
     Active Substance: METHYLPREDNISOLONE
  8. TOCILIZUMAB. [Suspect]
     Active Substance: TOCILIZUMAB
     Indication: POLYARTHRITIS
     Route: 065
  9. ABATACEPT [Suspect]
     Active Substance: ABATACEPT
     Indication: POLYARTHRITIS
     Route: 065
  10. METHOTREXATE. [Concomitant]
     Active Substance: METHOTREXATE
     Indication: JUVENILE IDIOPATHIC ARTHRITIS
  11. ACYCLOVIR [ACICLOVIR] [Concomitant]
     Active Substance: ACYCLOVIR

REACTIONS (1)
  - Encephalitis autoimmune [Recovered/Resolved]
